FAERS Safety Report 5404102-2 (Version None)
Quarter: 2007Q3

REPORT INFORMATION
  Report Type: 
  Country: None (occurrence: None)
  Receive Date: 20070731
  Receipt Date: 20070720
  Transmission Date: 20080115
  Serious: Yes (Hospitalization)
  Sender: FDA-Public Use
  Company Number: S07-USA-02642-01

PATIENT
  Age: 49 Year
  Sex: Male
  Weight: 73.891 kg

DRUGS (11)
  1. CELEXA [Suspect]
     Indication: DEPRESSION
  2. PEGASYS [Suspect]
     Indication: HEPATITIS C
     Dosage: 90 MCG SC
     Route: 058
     Dates: start: 20060615, end: 20070301
  3. PEGASYS [Suspect]
     Indication: HEPATITIS C
     Dosage: 45 MCG QD SC
     Route: 058
     Dates: start: 20070301
  4. EFFEXOR [Suspect]
     Dates: end: 20070415
  5. BACLOFEN [Suspect]
     Dates: start: 20070417
  6. OPIATE (NOS) [Suspect]
  7. WELLBUTRIN [Suspect]
     Indication: DEPRESSION
     Dosage: 150 MG QD PO
     Route: 048
     Dates: start: 20070417
  8. VOLTAREN [Suspect]
     Indication: PAIN
  9. AZITHROMYCIN [Concomitant]
  10. HYDROCHLOROTHIAZIDE [Concomitant]
  11. TOPROL-XL [Concomitant]

REACTIONS (33)
  - ABDOMINAL DISCOMFORT [None]
  - ABDOMINAL TENDERNESS [None]
  - AGGRESSION [None]
  - ANXIETY [None]
  - BACK PAIN [None]
  - BLOOD PRESSURE INCREASED [None]
  - DELIRIUM [None]
  - DRUG INEFFECTIVE [None]
  - DRUG INTERACTION [None]
  - DRUG WITHDRAWAL SYNDROME [None]
  - FATIGUE [None]
  - FREQUENT BOWEL MOVEMENTS [None]
  - HAEMATOCHEZIA [None]
  - HAEMOGLOBIN DECREASED [None]
  - HEART RATE INCREASED [None]
  - HEPATOMEGALY [None]
  - LEUKOPENIA [None]
  - LYMPHOCYTE COUNT DECREASED [None]
  - MENTAL DISORDER [None]
  - MENTAL STATUS CHANGES [None]
  - MUSCLE RIGIDITY [None]
  - NECK PAIN [None]
  - NEUTROPHIL COUNT DECREASED [None]
  - OVERDOSE [None]
  - RECTAL HAEMORRHAGE [None]
  - RED BLOOD CELL COUNT DECREASED [None]
  - RESPIRATORY DISTRESS [None]
  - RESPIRATORY RATE DECREASED [None]
  - RESTLESSNESS [None]
  - SINUS TACHYCARDIA [None]
  - THERAPEUTIC AGENT TOXICITY [None]
  - THROMBOCYTOPENIA [None]
  - TREMOR [None]
